FAERS Safety Report 25378977 (Version 1)
Quarter: 2025Q2

REPORT INFORMATION
  Report Type: Spontaneous
  Country: ES (occurrence: ES)
  Receive Date: 20250530
  Receipt Date: 20250530
  Transmission Date: 20250717
  Serious: Yes (Hospitalization)
  Sender: MYLAN
  Company Number: ES-MYLANLABS-2025M1044854

PATIENT
  Age: 64 Year
  Sex: Male

DRUGS (18)
  1. TACROLIMUS [Suspect]
     Active Substance: TACROLIMUS
     Indication: Thrombotic microangiopathy
  2. TACROLIMUS [Suspect]
     Active Substance: TACROLIMUS
     Indication: Immunosuppressant drug therapy
  3. EVEROLIMUS [Suspect]
     Active Substance: EVEROLIMUS
     Indication: Thrombotic microangiopathy
  4. MARIBAVIR [Suspect]
     Active Substance: MARIBAVIR
     Indication: Cytomegalovirus infection
  5. MARIBAVIR [Suspect]
     Active Substance: MARIBAVIR
  6. MARIBAVIR [Suspect]
     Active Substance: MARIBAVIR
  7. GANCICLOVIR [Suspect]
     Active Substance: GANCICLOVIR
     Indication: Cytomegalovirus infection
  8. GANCICLOVIR [Suspect]
     Active Substance: GANCICLOVIR
  9. GENETICALLY-MODIFIED AUTOLOGOUS T CELLS NOS [Suspect]
     Active Substance: GENETICALLY-MODIFIED AUTOLOGOUS T CELLS NOS
     Indication: Cytomegalovirus infection
  10. GENETICALLY-MODIFIED AUTOLOGOUS T CELLS NOS [Suspect]
     Active Substance: GENETICALLY-MODIFIED AUTOLOGOUS T CELLS NOS
  11. HUMAN CYTOMEGALOVIRUS IMMUNE GLOBULIN [Suspect]
     Active Substance: HUMAN CYTOMEGALOVIRUS IMMUNE GLOBULIN
     Indication: Cytomegalovirus infection
  12. FOSCARNET [Concomitant]
     Active Substance: FOSCARNET
     Indication: Cytomegalovirus infection
  13. FOSCARNET [Concomitant]
     Active Substance: FOSCARNET
     Indication: Thrombotic microangiopathy
  14. BASILIXIMAB [Concomitant]
     Active Substance: BASILIXIMAB
     Indication: Immunosuppressant drug therapy
  15. MYCOPHENOLATE MOFETIL [Concomitant]
     Active Substance: MYCOPHENOLATE MOFETIL
     Indication: Immunosuppressant drug therapy
  16. VALGANCICLOVIR [Concomitant]
     Active Substance: VALGANCICLOVIR
     Indication: Prophylaxis
  17. VALGANCICLOVIR [Concomitant]
     Active Substance: VALGANCICLOVIR
     Indication: Cytomegalovirus infection
  18. ECULIZUMAB [Concomitant]
     Active Substance: ECULIZUMAB
     Indication: Thrombotic microangiopathy

REACTIONS (2)
  - Drug ineffective [Unknown]
  - Off label use [Unknown]
